FAERS Safety Report 24344931 (Version 3)
Quarter: 2024Q4

REPORT INFORMATION
  Report Type: Spontaneous
  Country: MK (occurrence: MK)
  Receive Date: 20240920
  Receipt Date: 20241127
  Transmission Date: 20250115
  Serious: Yes (Death)
  Sender: PFIZER
  Company Number: MK-PFIZER INC-202400259903

PATIENT
  Age: 62 Year
  Sex: Female

DRUGS (1)
  1. TAFAMIDIS MEGLUMINE [Suspect]
     Active Substance: TAFAMIDIS MEGLUMINE
     Indication: Familial amyloidosis
     Dosage: UNK

REACTIONS (1)
  - Sudden death [Fatal]
